FAERS Safety Report 14893916 (Version 1)
Quarter: 2018Q2

REPORT INFORMATION
  Report Type: Spontaneous
  Country: US (occurrence: US)
  Receive Date: 20180425
  Receipt Date: 20180425
  Transmission Date: 20180711
  Serious: Yes (Life-Threatening)
  Sender: FDA-Public Use
  Company Number: None

PATIENT
  Age: 37 Year
  Sex: Female
  Weight: 63 kg

DRUGS (3)
  1. FISH OIL (WHOLEMEGA) [Concomitant]
  2. BLT (SBP) 2/6/4% [Suspect]
     Active Substance: BENZOCAINE\LIDOCAINE HYDROCHLORIDE\TETRACAINE
     Indication: PREOPERATIVE CARE
     Dosage: ?          QUANTITY:1 DROP(S);?
     Route: 061
     Dates: start: 20180424, end: 20180424
  3. MULTIVITAMIN MADE BY NEWCHAPTER [Concomitant]

REACTIONS (9)
  - Burning sensation [None]
  - Skin discolouration [None]
  - Feeling cold [None]
  - Chest discomfort [None]
  - Hyperventilation [None]
  - Fall [None]
  - Dyspnoea [None]
  - Palpitations [None]
  - Chills [None]

NARRATIVE: CASE EVENT DATE: 20180425
